FAERS Safety Report 8495945-X (Version None)
Quarter: 2012Q3

REPORT INFORMATION
  Report Type: 
  Country: None (occurrence: None)
  Receive Date: 20120709
  Receipt Date: 20120629
  Transmission Date: 20120928
  Serious: Yes (Other)
  Sender: FDA-Public Use
  Company Number: US-GLAXOSMITHKLINE-A0982884A

PATIENT
  Age: 45 Year
  Sex: Male

DRUGS (3)
  1. TRILEPTAL [Concomitant]
  2. POTIGA [Suspect]
     Indication: PARTIAL SEIZURES
     Dosage: 100MG THREE TIMES PER DAY
     Route: 048
  3. KEPPRA [Concomitant]

REACTIONS (5)
  - CONTUSION [None]
  - FALL [None]
  - MULTIPLE FRACTURES [None]
  - LOSS OF CONSCIOUSNESS [None]
  - INJURY [None]
